APPROVED DRUG PRODUCT: DILTIAZEM HYDROCHLORIDE
Active Ingredient: DILTIAZEM HYDROCHLORIDE
Strength: 60MG
Dosage Form/Route: CAPSULE, EXTENDED RELEASE;ORAL
Application: A074079 | Product #001
Applicant: TEVA PHARMACEUTICALS USA INC
Approved: Nov 30, 1993 | RLD: No | RS: No | Type: DISCN